FAERS Safety Report 9505339 (Version 1)
Quarter: 2013Q1

REPORT INFORMATION
  Report Type: Spontaneous
  Country: US (occurrence: None)
  Receive Date: 20130225
  Receipt Date: 20130225
  Transmission Date: 20140127
  Serious: No
  Sender: FDA-Public Use
  Company Number: 369279

PATIENT
  Age: 57 Year
  Sex: Female

DRUGS (1)
  1. VICTOZA (LIRAGLUTIDE) SOLUTION FOR INJECTION [Suspect]
     Indication: TYPE 2 DIABETES MELLITUS
     Route: 058
     Dates: start: 201211

REACTIONS (2)
  - Device malfunction [None]
  - Injection site haematoma [None]
